FAERS Safety Report 6687611-8 (Version None)
Quarter: 2010Q2

REPORT INFORMATION
  Report Type: 
  Country: None (occurrence: None)
  Receive Date: 20100416
  Receipt Date: 20100416
  Transmission Date: 20101027
  Serious: Yes (Other)
  Sender: FDA-Public Use
  Company Number: None

PATIENT
  Sex: Female
  Weight: 64.8644 kg

DRUGS (1)
  1. XOPENEX HFA [Suspect]
     Indication: LUNG DISORDER
     Dosage: 2 PUFFS BEFORE EXERCISE INHAL
     Route: 055
     Dates: start: 20100323, end: 20100412

REACTIONS (2)
  - CHEST DISCOMFORT [None]
  - HEART RATE IRREGULAR [None]
